FAERS Safety Report 11325865 (Version 1)
Quarter: 2015Q3

REPORT INFORMATION
  Report Type: Spontaneous
  Country: US (occurrence: US)
  Receive Date: 20150731
  Receipt Date: 20150731
  Transmission Date: 20151125
  Serious: No
  Sender: FDA-Public Use
  Company Number: US-009507513-1507USA011810

PATIENT
  Sex: Female
  Weight: 117.91 kg

DRUGS (2)
  1. NUVARING [Suspect]
     Active Substance: ETHINYL ESTRADIOL\ETONOGESTREL
     Indication: MENSTRUAL CYCLE MANAGEMENT
     Dosage: UNK, QM
     Route: 067
     Dates: start: 2013
  2. VITAMINS (UNSPECIFIED) [Concomitant]
     Active Substance: VITAMINS

REACTIONS (4)
  - Incorrect drug administration duration [Unknown]
  - Alopecia [Not Recovered/Not Resolved]
  - Metrorrhagia [Not Recovered/Not Resolved]
  - Drug administration error [Unknown]

NARRATIVE: CASE EVENT DATE: 2013
